FAERS Safety Report 9707027 (Version 2)
Quarter: 2013Q4

REPORT INFORMATION
  Report Type: Spontaneous
  Country: US (occurrence: US)
  Receive Date: 20131125
  Receipt Date: 20131231
  Transmission Date: 20140711
  Serious: Yes (Other)
  Sender: FDA-Public Use
  Company Number: US-PFIZER INC-2013334393

PATIENT
  Sex: Female

DRUGS (2)
  1. LYRICA [Suspect]
     Dosage: UNK
  2. PREDNISONE [Suspect]
     Dosage: UNK

REACTIONS (4)
  - Weight increased [Unknown]
  - Hunger [Unknown]
  - Somnolence [Unknown]
  - Communication disorder [Unknown]
